FAERS Safety Report 9449874 (Version 2)
Quarter: 2013Q3

REPORT INFORMATION
  Report Type: Report from Study
  Country: US (occurrence: US)
  Receive Date: 20130809
  Receipt Date: 20130905
  Transmission Date: 20140515
  Serious: Yes (Other)
  Sender: FDA-Public Use
  Company Number: US-NAPPMUNDI-USA-2013-0105179

PATIENT
  Age: 46 Year
  Sex: Female

DRUGS (2)
  1. OXYCONTIN (NDA 22-272) [Suspect]
     Indication: ABDOMINAL PAIN
     Dosage: 80 MG, AC + HS
     Route: 048
     Dates: start: 20030606
  2. OXYCONTIN (NDA 22-272) [Suspect]
     Indication: BACK PAIN
     Dosage: 60 MG, PM
     Route: 048

REACTIONS (4)
  - Fall [Recovered/Resolved]
  - Muscle strain [Unknown]
  - Tendon injury [Unknown]
  - Ligament sprain [Unknown]
